FAERS Safety Report 7030713-7 (Version None)
Quarter: 2010Q4

REPORT INFORMATION
  Report Type: 
  Country: None (occurrence: None)
  Receive Date: 20101001
  Receipt Date: 20100927
  Transmission Date: 20110411
  Serious: Yes (Other)
  Sender: FDA-Public Use
  Company Number: TRP_07293_2010

PATIENT
  Sex: Female

DRUGS (8)
  1. INFERGEN [Suspect]
     Indication: HEPATITIS C
     Dosage: 15 UG QD SUBCUTANEOUS
     Route: 058
     Dates: start: 20100915
  2. RIBASPHERE [Suspect]
     Indication: HEPATITIS C
     Dosage: 1400 MG, 800 MG QAM AND 600 MG QPM, ORAL
     Route: 048
     Dates: start: 20100915
  3. METFORMIN [Concomitant]
  4. AMARYL [Concomitant]
  5. LISINOPRIL [Concomitant]
  6. XANAX [Concomitant]
  7. TOPAMAX [Concomitant]
  8. OXYCODONE [Concomitant]

REACTIONS (9)
  - ASTHENIA [None]
  - CHEST PAIN [None]
  - CONDITION AGGRAVATED [None]
  - HEADACHE [None]
  - INFLUENZA LIKE ILLNESS [None]
  - PAIN [None]
  - PANIC ATTACK [None]
  - RHINORRHOEA [None]
  - SELF-MEDICATION [None]
